FAERS Safety Report 19146254 (Version 1)
Quarter: 2021Q2

REPORT INFORMATION
  Report Type: Spontaneous
  Country: CN (occurrence: CN)
  Receive Date: 20210416
  Receipt Date: 20210416
  Transmission Date: 20210717
  Serious: Yes (Other)
  Sender: FDA-Public Use
  Company Number: CN-ASTRAZENECA-2021A237279

PATIENT
  Age: 12731 Day
  Sex: Female
  Weight: 94 kg

DRUGS (2)
  1. LIRAGLUTIDE [Suspect]
     Active Substance: LIRAGLUTIDE
     Indication: BLOOD GLUCOSE DECREASED
     Route: 058
     Dates: start: 20210128, end: 20210131
  2. DAPAGLIFLOZIN. [Suspect]
     Active Substance: DAPAGLIFLOZIN
     Indication: BLOOD GLUCOSE DECREASED
     Route: 048
     Dates: start: 20210129, end: 20210205

REACTIONS (6)
  - Vomiting [Not Recovered/Not Resolved]
  - Diabetic ketosis [Unknown]
  - Diarrhoea [Recovered/Resolved]
  - Hiccups [Not Recovered/Not Resolved]
  - Discomfort [Not Recovered/Not Resolved]
  - Nausea [Not Recovered/Not Resolved]

NARRATIVE: CASE EVENT DATE: 20210129
